FAERS Safety Report 8343252-8 (Version None)
Quarter: 2012Q2

REPORT INFORMATION
  Report Type: 
  Country: None (occurrence: None)
  Receive Date: 20120503
  Receipt Date: 20120503
  Transmission Date: 20120825
  Serious: Yes (Hospitalization)
  Sender: FDA-Public Use
  Company Number: None

PATIENT
  Sex: Female

DRUGS (3)
  1. NEUPOGEN 300MCG PFS AMGEN [Suspect]
     Indication: NEUTROPENIA
     Dosage: 300MCG SUBCUTANEOUSLY THREE TIMES PER WEEK
     Route: 058
     Dates: start: 20120419, end: 20120421
  2. RIBAVIRIN [Concomitant]
  3. PEGASYS [Concomitant]

REACTIONS (3)
  - ABDOMINAL PAIN [None]
  - SPLENOMEGALY [None]
  - DYSPNOEA [None]
